FAERS Safety Report 9565589 (Version 1)
Quarter: 2013Q3

REPORT INFORMATION
  Report Type: Spontaneous
  Country: FR (occurrence: FR)
  Receive Date: 20130930
  Receipt Date: 20130930
  Transmission Date: 20140515
  Serious: Yes (Death, Hospitalization, Other)
  Sender: FDA-Public Use
  Company Number: FR-009507513-1309FRA013569

PATIENT
  Age: 49 Year
  Sex: Female

DRUGS (15)
  1. EPTIFIBATIDE [Suspect]
     Indication: ACUTE CORONARY SYNDROME
     Dosage: 2 DF, QD
     Route: 042
     Dates: start: 20130820, end: 20130820
  2. TENECTEPLASE [Suspect]
     Indication: ACUTE CORONARY SYNDROME
     Dosage: UNK
     Route: 042
     Dates: start: 20130820, end: 20130820
  3. ASPIRIN LYSINE (+) GLYCINE [Suspect]
     Indication: ACUTE CORONARY SYNDROME
     Dosage: UNK
     Route: 042
     Dates: start: 20130820, end: 20130820
  4. ENOXAPARIN SODIUM [Suspect]
     Indication: ACUTE CORONARY SYNDROME
     Dosage: UNK
     Route: 065
     Dates: start: 20130820, end: 20130820
  5. CLOPIDOGREL BISULFATE [Suspect]
     Indication: ACUTE CORONARY SYNDROME
     Dosage: 300 MG, QD
     Route: 048
     Dates: start: 20130820, end: 20130820
  6. TICAGRELOR [Suspect]
     Indication: ACUTE CORONARY SYNDROME
     Dosage: 180 G, QD
     Route: 048
     Dates: start: 20130820, end: 20130820
  7. ALPRAZOLAM [Concomitant]
     Dosage: UNK
     Dates: start: 20130820
  8. ACETAMINOPHEN [Concomitant]
     Dosage: UNK
     Dates: start: 20130820
  9. MORPHINE [Concomitant]
     Dosage: UNK
     Dates: start: 20130820
  10. ISOSORBIDE DINITRATE [Concomitant]
     Dosage: UNK
     Dates: start: 20130820
  11. ATENOLOL [Concomitant]
     Dosage: UNK
     Dates: start: 20130820
  12. LIDOCAINE [Concomitant]
     Dosage: UNK
     Dates: start: 20130820
  13. FENTANYL [Concomitant]
     Dosage: UNK
     Dates: start: 20130820
  14. SELOKEN [Concomitant]
     Dosage: UNK
     Dates: start: 20130820
  15. ATORVASTATIN CALCIUM [Concomitant]
     Dosage: UNK
     Dates: start: 20130820

REACTIONS (12)
  - Loss of consciousness [Unknown]
  - Vomiting [Unknown]
  - Pupils unequal [Unknown]
  - Body temperature decreased [Unknown]
  - Mydriasis [Unknown]
  - Brain oedema [Unknown]
  - Cerebral ischaemia [Unknown]
  - Polyuria [Unknown]
  - Hypoventilation [Unknown]
  - Corneal light reflex test abnormal [Unknown]
  - Tachycardia [Unknown]
  - Cerebral haemorrhage [Fatal]
